FAERS Safety Report 13240426 (Version 1)
Quarter: 2017Q1

REPORT INFORMATION
  Report Type: Spontaneous
  Country: US (occurrence: US)
  Receive Date: 20170216
  Receipt Date: 20170216
  Transmission Date: 20170428
  Serious: No
  Sender: FDA-Public Use
  Company Number: US-RELYPSA-RLY2016003564

PATIENT
  Age: 77 Year
  Sex: Female

DRUGS (7)
  1. SODIUM BICARBONATE. [Concomitant]
     Active Substance: SODIUM BICARBONATE
  2. TERAZOSIN [Concomitant]
     Active Substance: TERAZOSIN\TERAZOSIN HYDROCHLORIDE
  3. CARVEDILOL. [Concomitant]
     Active Substance: CARVEDILOL
  4. BUPROPION. [Concomitant]
     Active Substance: BUPROPION
  5. CALCITRIOL. [Concomitant]
     Active Substance: CALCITRIOL
  6. LOSARTAN. [Concomitant]
     Active Substance: LOSARTAN
  7. VELTASSA [Suspect]
     Active Substance: PATIROMER
     Indication: HYPERKALAEMIA
     Dosage: 8.4 G, QD
     Route: 048
     Dates: start: 20160923

REACTIONS (5)
  - Blood urea increased [Unknown]
  - Palpitations [Recovered/Resolved]
  - Blood creatinine increased [Unknown]
  - Glomerular filtration rate decreased [Unknown]
  - Carbon dioxide decreased [Unknown]

NARRATIVE: CASE EVENT DATE: 20161020
